FAERS Safety Report 6134032-2 (Version None)
Quarter: 2009Q1

REPORT INFORMATION
  Report Type: 
  Country: None (occurrence: None)
  Receive Date: 20090326
  Receipt Date: 20090318
  Transmission Date: 20090719
  Serious: Yes (Hospitalization, Other)
  Sender: FDA-Public Use
  Company Number: US-ELI_LILLY_AND_COMPANY-US200809002514

PATIENT
  Sex: Male
  Weight: 120 kg

DRUGS (3)
  1. ATOMOXETINE HCL [Suspect]
     Indication: ATTENTION DEFICIT/HYPERACTIVITY DISORDER
     Dosage: 40 MG, DAILY (1/D)
     Route: 048
     Dates: start: 20080828, end: 20080907
  2. BENICAR HCT [Concomitant]
     Indication: HYPERTENSION
     Dosage: 1 UNK, DAILY (1/D)
     Dates: start: 20040101
  3. MOTRIN [Concomitant]
     Indication: TENSION HEADACHE
     Dosage: 600 MG, DAILY (1/D)
     Dates: start: 19930101

REACTIONS (2)
  - HEPATITIS ALCOHOLIC [None]
  - MYOCARDIAL INFARCTION [None]
